FAERS Safety Report 10273454 (Version 1)
Quarter: 2014Q1

REPORT INFORMATION
  Report Type: Spontaneous
  Country: US (occurrence: None)
  Receive Date: 20140306
  Receipt Date: 20140306
  Transmission Date: 20141002
  Serious: Yes (Hospitalization)
  Sender: FDA-Public Use
  Company Number: 163-21880-13082283

PATIENT
  Age: 86 Year
  Sex: Female

DRUGS (9)
  1. REVLIMID [Suspect]
     Indication: PLASMA CELL MYELOMA
     Dosage: 5 MG, 21 IN 21 D, PO
     Route: 048
     Dates: start: 20130611
  2. ALDACTONE (SPIRONOLACTONE) [Concomitant]
  3. ATENOLOL (ATENOLOL) [Concomitant]
  4. CLONIDINE HCL [Concomitant]
  5. DEXAMETHASONE (DEXAMETHASONE) [Concomitant]
  6. DIGOXIN (DIGOXIN) [Concomitant]
  7. FUROSEMIDE (FUROSEMIDE) [Concomitant]
  8. LASIX (FUROSEMIDE) [Concomitant]
  9. LISINOPRIL (LISINOPRIL) [Concomitant]

REACTIONS (3)
  - Bradycardia [None]
  - Blood pressure fluctuation [None]
  - Weight decreased [None]
